FAERS Safety Report 4498370-1 (Version None)
Quarter: 2004Q4

REPORT INFORMATION
  Report Type: 
  Country: None (occurrence: None)
  Receive Date: 20041105
  Receipt Date: 20041021
  Transmission Date: 20050328
  Serious: Yes (Hospitalization)
  Sender: FDA-Public Use
  Company Number: A01200405320

PATIENT
  Age: 69 Year
  Sex: Male

DRUGS (1)
  1. XATRAL - (ALFUZOSIN) - TABLET [Suspect]
     Indication: DYSURIA
     Dosage: 10 MG, ORAL
     Route: 048
     Dates: start: 20040923, end: 20040927

REACTIONS (1)
  - ATRIAL FIBRILLATION [None]
